FAERS Safety Report 15075142 (Version 1)
Quarter: 2018Q2

REPORT INFORMATION
  Report Type: Spontaneous
  Country: US (occurrence: US)
  Receive Date: 20180627
  Receipt Date: 20180627
  Transmission Date: 20180711
  Serious: Yes (Other)
  Sender: FDA-Public Use
  Company Number: US-SAOL THERAPEUTICS-2018SAO00215

PATIENT
  Age: 53 Year
  Sex: Male
  Weight: 77.98 kg

DRUGS (5)
  1. LIORESAL [Suspect]
     Active Substance: BACLOFEN
     Dosage: 0.62 ?G, \DAY - MINIMUM RATE
     Dates: start: 20180102
  2. MORPHINE [Suspect]
     Active Substance: MORPHINE
     Dosage: 4.997 MG, \DAY
     Route: 037
     Dates: end: 20180102
  3. MORPHINE [Suspect]
     Active Substance: MORPHINE
     Dosage: 15.005 MG, \DAY
     Dates: start: 20180104
  4. MORPHINE [Suspect]
     Active Substance: MORPHINE
     Dosage: 0.155 MG, \DAY- MINIMUM RATE
     Dates: start: 20180102
  5. LIORESAL [Suspect]
     Active Substance: BACLOFEN
     Dosage: 19.99 ?G, \DAY
     Route: 037
     Dates: end: 20180102

REACTIONS (2)
  - Pain [Recovered/Resolved]
  - Device failure [Recovered/Resolved]

NARRATIVE: CASE EVENT DATE: 20171226
